FAERS Safety Report 13367788 (Version 1)
Quarter: 2017Q1

REPORT INFORMATION
  Report Type: Spontaneous
  Country: NL (occurrence: NL)
  Receive Date: 20170324
  Receipt Date: 20170324
  Transmission Date: 20170429
  Serious: Yes (Other)
  Sender: FDA-Public Use
  Company Number: NL-AMGEN-NLDSP2017043345

PATIENT
  Age: 62 Year
  Sex: Male

DRUGS (19)
  1. COLECALCIFEROL [Concomitant]
     Active Substance: CHOLECALCIFEROL
     Dosage: 1.25 G, QD
     Dates: start: 20161221
  2. MACROGOL [Concomitant]
     Active Substance: POLYETHYLENE GLYCOLS
     Dosage: UNK
     Dates: start: 20161206
  3. CYPROTERONACETAAT [Concomitant]
     Dosage: 50 MG, QD
     Dates: start: 20170113
  4. CALCIUMCARBONAAT [Concomitant]
     Dosage: 500 MG, UNK
     Dates: start: 20161221
  5. DEGARELIX [Concomitant]
     Active Substance: DEGARELIX
     Dosage: 80 MG, UNK
     Dates: start: 20161123
  6. OXYCODON [Concomitant]
     Active Substance: OXYCODONE
     Dosage: 10 MG, UNK
     Dates: start: 20161121
  7. TAXOTERE [Concomitant]
     Active Substance: DOCETAXEL
     Indication: PROSTATE CANCER
  8. ATORVASTATINE [Concomitant]
     Active Substance: ATORVASTATIN
     Dosage: 20 MG, QD
     Dates: start: 20161121
  9. OXAZEPAM. [Concomitant]
     Active Substance: OXAZEPAM
     Dosage: 10 MG, QD
     Dates: start: 20161210, end: 20161219
  10. XGEVA [Suspect]
     Active Substance: DENOSUMAB
     Dosage: 70 MG/ML,(1.7ML) UNK
     Route: 058
     Dates: start: 20161222
  11. OXYCODON [Concomitant]
     Active Substance: OXYCODONE
     Dosage: 5 MG, QD
     Dates: start: 20161111
  12. DOXYCYCLINE. [Concomitant]
     Active Substance: DOXYCYCLINE
     Dosage: 100 MG, UNK
     Dates: start: 20170201, end: 20170205
  13. ETORICOXIB [Concomitant]
     Active Substance: ETORICOXIB
     Dosage: 120 MG, QD
     Dates: start: 20161228
  14. XGEVA [Suspect]
     Active Substance: DENOSUMAB
     Indication: METASTASES TO BONE
     Dosage: 120 MG, Q3WK
     Route: 058
     Dates: start: 20161222
  15. TAMSULOSINE HCL [Concomitant]
     Active Substance: TAMSULOSIN
     Dosage: 0.4 MG, UNK
     Dates: start: 20161121
  16. DEXAMETHASON [Concomitant]
     Active Substance: DEXAMETHASONE
     Dosage: 4 MG, UNK
     Dates: start: 20161128, end: 20170313
  17. METOCLOPRAMIDE. [Concomitant]
     Active Substance: METOCLOPRAMIDE
     Dosage: 10 MG, UNK
     Dates: start: 20161128, end: 20161227
  18. DOCETAXEL. [Concomitant]
     Active Substance: DOCETAXEL
     Dosage: 20 MG, UNK
     Dates: start: 20161128
  19. LANSOPRAZOL [Concomitant]
     Active Substance: LANSOPRAZOLE
     Dosage: 30 MG, UNK
     Dates: start: 20161121, end: 20170218

REACTIONS (5)
  - Scrotal infection [Unknown]
  - Anal abscess [Unknown]
  - Body temperature increased [Unknown]
  - Abasia [Unknown]
  - Swelling [Recovering/Resolving]

NARRATIVE: CASE EVENT DATE: 20170316
